FAERS Safety Report 4305268-8 (Version None)
Quarter: 2004Q1

REPORT INFORMATION
  Report Type: 
  Country: None (occurrence: None)
  Receive Date: 20040226
  Receipt Date: 20021213
  Transmission Date: 20041129
  Serious: No
  Sender: FDA-Public Use
  Company Number: US-BRISTOL-MYERS SQUIBB COMPANY-12136743

PATIENT
  Age: 76 Year
  Sex: Male
  Weight: 100 kg

DRUGS (5)
  1. TAXOL [Suspect]
     Indication: SMALL CELL LUNG CANCER STAGE UNSPECIFIED
     Route: 042
     Dates: start: 20020319, end: 20020319
  2. CARBOPLATIN [Concomitant]
     Dates: start: 20020201, end: 20020201
  3. IRON (FERROUS SULFATE) [Concomitant]
  4. MULTI-VITAMIN [Concomitant]
  5. LAXATIVES [Concomitant]

REACTIONS (1)
  - NAIL DISORDER [None]
